FAERS Safety Report 10564421 (Version 4)
Quarter: 2015Q2

REPORT INFORMATION
  Report Type: Spontaneous
  Country: US (occurrence: US)
  Receive Date: 20141104
  Receipt Date: 20150616
  Transmission Date: 20150821
  Serious: Yes (Hospitalization)
  Sender: FDA-Public Use
  Company Number: US-009507513-1411USA000711

PATIENT
  Age: 73 Year

DRUGS (5)
  1. DECADRON [Suspect]
     Active Substance: DEXAMETHASONE
     Indication: PLASMA CELL MYELOMA
     Dosage: DOSE:40 MG,WEEKLY;DURATION:4 WEEKS
     Route: 048
     Dates: start: 20121102, end: 20130329
  2. DECADRON [Suspect]
     Active Substance: DEXAMETHASONE
     Dosage: DOSE:40 MG,FREQUENCY:4 DAYS
     Route: 048
     Dates: start: 20110607, end: 20110610
  3. MELPHALAN [Suspect]
     Active Substance: MELPHALAN
     Indication: PLASMA CELL MYELOMA
     Dosage: 6 MG, DAILY; DURATION DAY 1-4
     Route: 048
     Dates: start: 20121102, end: 20130401
  4. VELCADE [Suspect]
     Active Substance: BORTEZOMIB
     Indication: PLASMA CELL MYELOMA
     Dosage: 2.6 MG, DAY:1,8,15,22;DURATION:4 CYCLE
     Route: 058
     Dates: start: 20121102, end: 20130412
  5. VELCADE [Suspect]
     Active Substance: BORTEZOMIB
     Dosage: 2.6MG, DAY 1, 8,15,22
     Route: 042
     Dates: start: 20110607, end: 20110621

REACTIONS (2)
  - Rectal haemorrhage [Unknown]
  - Pericardial effusion [Unknown]

NARRATIVE: CASE EVENT DATE: 20110622
